FAERS Safety Report 16047586 (Version 1)
Quarter: 2019Q1

REPORT INFORMATION
  Report Type: Spontaneous
  Country: CI (occurrence: CI)
  Receive Date: 20190307
  Receipt Date: 20190307
  Transmission Date: 20190418
  Serious: Yes (Death, Life-Threatening, Hospitalization, Other)
  Sender: FDA-Public Use
  Company Number: CI-GLAXOSMITHKLINE-CI2019040798

PATIENT
  Age: 61 Year
  Sex: Female

DRUGS (1)
  1. DICLOFENAC [Suspect]
     Active Substance: DICLOFENAC
     Indication: BACK PAIN
     Dosage: 50 MG, SINGLE DOSE OF THREE TABLETS OF DICLOFENAC 50 MG ; IN TOTAL
     Route: 048

REACTIONS (3)
  - Lymphopenia [Unknown]
  - Toxic epidermal necrolysis [Fatal]
  - Self-medication [Unknown]
